FAERS Safety Report 4280207-7 (Version None)
Quarter: 2004Q1

REPORT INFORMATION
  Report Type: 
  Country: None (occurrence: None)
  Receive Date: 20040128
  Receipt Date: 20040124
  Transmission Date: 20041129
  Serious: Yes (Hospitalization)
  Sender: FDA-Public Use
  Company Number: GB-GLAXOSMITHKLINE-B0320934A

PATIENT
  Age: 83 Year
  Sex: Male

DRUGS (9)
  1. AMOXICILLIN [Suspect]
     Indication: LOWER RESPIRATORY TRACT INFECTION
     Route: 048
     Dates: start: 20030108, end: 20030110
  2. SALBUTAMOL [Concomitant]
     Route: 065
  3. DIGOXIN [Concomitant]
     Route: 065
  4. RAMIPRIL [Concomitant]
     Dosage: 2.5MG PER DAY
     Route: 065
  5. SERETIDE [Concomitant]
     Route: 065
  6. SPIRONOLACTONE [Concomitant]
     Dosage: 25MG PER DAY
     Route: 065
  7. FRUSEMIDE [Concomitant]
     Dosage: 80MG PER DAY
     Route: 065
  8. TIOTROPIUM BROMIDE [Concomitant]
     Route: 065
  9. WARFARIN SODIUM [Concomitant]
     Route: 065

REACTIONS (3)
  - BLOOD BLISTER [None]
  - INTERNATIONAL NORMALISED RATIO INCREASED [None]
  - PURPURA [None]
